FAERS Safety Report 24073297 (Version 5)
Quarter: 2025Q2

REPORT INFORMATION
  Report Type: Spontaneous
  Country: JP (occurrence: JP)
  Receive Date: 20240710
  Receipt Date: 20250527
  Transmission Date: 20250717
  Serious: Yes (Life-Threatening, Hospitalization)
  Sender: ABBVIE
  Company Number: JP-ABBVIE-5832701

PATIENT
  Age: 56 Year
  Sex: Male
  Weight: 54 kg

DRUGS (8)
  1. RINVOQ [Suspect]
     Active Substance: UPADACITINIB
     Indication: Colitis ulcerative
     Route: 048
     Dates: start: 20240523, end: 20240613
  2. SULFAMETHOXAZOLE AND TRIMETHOPRIM [Concomitant]
     Active Substance: SULFAMETHOXAZOLE\TRIMETHOPRIM
     Indication: Colitis ulcerative
     Dosage: 1 TABLET
     Route: 048
     Dates: end: 20240816
  3. PREDNISOLONE [Suspect]
     Active Substance: PREDNISOLONE
     Indication: Product used for unknown indication
     Dosage: 10 MILLIGRAM
     Route: 048
  4. GANCICLOVIR [Concomitant]
     Active Substance: GANCICLOVIR
     Indication: Cytomegalovirus enterocolitis
     Dates: start: 20240515, end: 20240531
  5. DIETARY SUPPLEMENT\PROBIOTICS [Concomitant]
     Active Substance: DIETARY SUPPLEMENT\PROBIOTICS NOS
     Indication: Product used for unknown indication
     Route: 048
  6. ALENDRONATE SODIUM [Concomitant]
     Active Substance: ALENDRONATE SODIUM
     Indication: Osteoporosis prophylaxis
     Dosage: 35 MILLIGRAM
     Route: 048
  7. VONOPRAZAN FUMARATE [Concomitant]
     Active Substance: VONOPRAZAN FUMARATE
     Indication: Prophylaxis against gastrointestinal ulcer
     Dosage: 10 MILLIGRAM
     Route: 048
  8. Clostridium butyricum [Concomitant]
     Indication: Product used for unknown indication
     Route: 048

REACTIONS (7)
  - Colitis ulcerative [Recovered/Resolved]
  - Pneumonia [Recovering/Resolving]
  - Infection [Unknown]
  - Pyrexia [Recovered/Resolved]
  - Septic shock [Recovered/Resolved]
  - Blood pressure decreased [Unknown]
  - Drug ineffective [Unknown]

NARRATIVE: CASE EVENT DATE: 20240101
